FAERS Safety Report 8433663-4 (Version None)
Quarter: 2012Q2

REPORT INFORMATION
  Report Type: 
  Country: None (occurrence: None)
  Receive Date: 20120323
  Receipt Date: 20110621
  Transmission Date: 20120825
  Serious: Yes (Hospitalization)
  Sender: FDA-Public Use
  Company Number: 163-21880-11062893

PATIENT
  Age: 75 Year
  Sex: Female

DRUGS (1)
  1. REVLIMID [Suspect]
     Indication: MULTIPLE MYELOMA
     Dosage: 10 MG, DAILY FOR 21 DAYS ON 7 DAYS OFF, PO
     Route: 048
     Dates: start: 20100201

REACTIONS (2)
  - TRANSIENT ISCHAEMIC ATTACK [None]
  - HEMIPARESIS [None]
